FAERS Safety Report 17315107 (Version 2)
Quarter: 2020Q2

REPORT INFORMATION
  Report Type: Spontaneous
  Country: DE (occurrence: DE)
  Receive Date: 20200124
  Receipt Date: 20200430
  Transmission Date: 20200713
  Serious: Yes (Other)
  Sender: FDA-Public Use
  Company Number: NVSC2020DE017139

PATIENT
  Age: 20 Year
  Sex: Male

DRUGS (9)
  1. FLUDARABINE [Concomitant]
     Active Substance: FLUDARABINE PHOSPHATE
     Indication: STEM CELL TRANSPLANT
     Dosage: 4 DOSAGES 40 MG/M2
     Route: 065
  2. MYCOPHENOLATE MOFETIL. [Suspect]
     Active Substance: MYCOPHENOLATE MOFETIL
     Indication: STEM CELL TRANSPLANT
     Dosage: UNK
     Route: 065
  3. MYCOPHENOLATE MOFETIL. [Suspect]
     Active Substance: MYCOPHENOLATE MOFETIL
     Indication: IMMUNOSUPPRESSANT DRUG THERAPY
  4. CYCLOSPORINE. [Suspect]
     Active Substance: CYCLOSPORINE
     Indication: IMMUNOSUPPRESSANT DRUG THERAPY
  5. ANTITHYMOCYTE IMMUNOGLOBULIN [Suspect]
     Active Substance: THYMOCYTE IMMUNE GLOBULIN NOS
     Indication: ALLOGENIC STEM CELL TRANSPLANTATION
     Dosage: UNK
     Route: 065
  6. TREOSULFAN [Concomitant]
     Active Substance: TREOSULFAN
     Indication: STEM CELL TRANSPLANT
     Dosage: 3 DOSAGES 14 MG/M2
     Route: 065
  7. MYCOPHENOLATE MOFETIL. [Suspect]
     Active Substance: MYCOPHENOLATE MOFETIL
     Indication: IMMUNOSUPPRESSANT DRUG THERAPY
  8. THIOTEPA. [Concomitant]
     Active Substance: THIOTEPA
     Indication: STEM CELL TRANSPLANT
     Dosage: 2 DOSAGES 5 MG/KG
     Route: 065
  9. CYCLOSPORINE. [Suspect]
     Active Substance: CYCLOSPORINE
     Indication: STEM CELL TRANSPLANT
     Dosage: UNK
     Route: 065

REACTIONS (7)
  - Encephalitis viral [Recovered/Resolved]
  - Acute graft versus host disease in skin [Recovered/Resolved]
  - Cytomegalovirus infection reactivation [Not Recovered/Not Resolved]
  - Product use in unapproved indication [Unknown]
  - Transplant rejection [Unknown]
  - Acute graft versus host disease in intestine [Recovered/Resolved]
  - Human herpesvirus 6 infection [Recovered/Resolved]
